FAERS Safety Report 11220205 (Version 2)
Quarter: 2015Q3

REPORT INFORMATION
  Report Type: Report from Study
  Country: US (occurrence: US)
  Receive Date: 20150625
  Receipt Date: 20150928
  Transmission Date: 20151125
  Serious: No
  Sender: FDA-Public Use
  Company Number: US-EXELIXIS-CABO-15005438

PATIENT
  Age: 50 Year
  Sex: Female
  Weight: 115.9 kg

DRUGS (15)
  1. MAGNESIUM + B6 [Concomitant]
  2. POTASSIUM CL [Concomitant]
     Active Substance: POTASSIUM CHLORIDE
  3. MULTIVITAMIN [Concomitant]
     Active Substance: VITAMINS
  4. VITAMIN B COMPLEX [Concomitant]
     Active Substance: CYANOCOBALAMIN\DEXPANTHENOL\NIACINAMIDE\PYRIDOXINE HYDROCHLORIDE\RIBOFLAVIN 5^-PHOSPHATE SODIUM\THIAMINE HYDROCHLORIDE\VITAMIN B COMPLEX
  5. COMETRIQ [Suspect]
     Active Substance: CABOZANTINIB S-MALATE
     Indication: THYROID CANCER
     Dosage: 20 MG, QD
     Route: 048
     Dates: start: 20150508, end: 20150515
  6. ONDANSETRON [Concomitant]
     Active Substance: ONDANSETRON
  7. VITAMIN C [Concomitant]
     Active Substance: ASCORBIC ACID
  8. IMODIUM AD [Concomitant]
     Active Substance: LOPERAMIDE HYDROCHLORIDE
  9. FUROSEMIDE. [Concomitant]
     Active Substance: FUROSEMIDE
  10. COMETRIQ [Suspect]
     Active Substance: CABOZANTINIB S-MALATE
     Dosage: 60 MG, QD
     Route: 048
     Dates: start: 20150523
  11. CHOLESTYRAMINE. [Concomitant]
     Active Substance: CHOLESTYRAMINE
  12. LIOTHYRONINE [Concomitant]
     Active Substance: LIOTHYRONINE
  13. CALCIUM + VITAMIN D3 [Concomitant]
  14. LEVOTHYROXINE. [Concomitant]
     Active Substance: LEVOTHYROXINE
  15. CODEINE SULFATE. [Concomitant]
     Active Substance: CODEINE SULFATE

REACTIONS (14)
  - Pain in extremity [Unknown]
  - Burning sensation [Unknown]
  - Dysgeusia [Unknown]
  - Weight decreased [Unknown]
  - Breast discomfort [Unknown]
  - Nausea [Unknown]
  - Decreased appetite [Unknown]
  - Abdominal pain upper [Unknown]
  - Skin exfoliation [Not Recovered/Not Resolved]
  - Abdominal mass [Unknown]
  - Respiratory disorder [Recovering/Resolving]
  - Abdominal pain [Unknown]
  - Fatigue [Not Recovered/Not Resolved]
  - Blister [Recovering/Resolving]

NARRATIVE: CASE EVENT DATE: 20150514
